FAERS Safety Report 6401545-5 (Version None)
Quarter: 2009Q4

REPORT INFORMATION
  Report Type: 
  Country: None (occurrence: None)
  Receive Date: 20091015
  Receipt Date: 20091009
  Transmission Date: 20100525
  Serious: Yes (Hospitalization)
  Sender: FDA-Public Use
  Company Number: JP-BAYER-200913396BYL

PATIENT
  Age: 54 Year
  Sex: Male
  Weight: 84 kg

DRUGS (7)
  1. ASPIRIN [Suspect]
     Indication: THROMBOTIC CEREBRAL INFARCTION
     Route: 048
     Dates: start: 20080629
  2. PLAVIX [Suspect]
     Indication: THROMBOTIC CEREBRAL INFARCTION
     Route: 048
     Dates: start: 20080629
  3. ARGATROBAN [Concomitant]
     Indication: THROMBOTIC CEREBRAL INFARCTION
     Route: 042
     Dates: start: 20080629
  4. CILOSTAZOL [Concomitant]
     Indication: THROMBOTIC CEREBRAL INFARCTION
     Route: 048
     Dates: start: 20080629
  5. TAKEPRON [Concomitant]
     Indication: HAEMORRHAGE PROPHYLAXIS
     Route: 048
     Dates: start: 20080629, end: 20080711
  6. BEZATOL SR [Concomitant]
     Indication: DYSLIPIDAEMIA
     Route: 048
     Dates: start: 20080705
  7. OLMETEC [Concomitant]
     Indication: HYPERTENSION
     Route: 048
     Dates: start: 20080709

REACTIONS (3)
  - ANAEMIA [None]
  - CEREBRAL INFARCTION [None]
  - DUODENAL ULCER HAEMORRHAGE [None]
